FAERS Safety Report 7803109-5 (Version None)
Quarter: 2011Q4

REPORT INFORMATION
  Report Type: 
  Country: None (occurrence: None)
  Receive Date: 20111007
  Receipt Date: 20110928
  Transmission Date: 20120403
  Serious: Yes (Hospitalization)
  Sender: FDA-Public Use
  Company Number: US-JNJFOC-20110701391

PATIENT
  Sex: Male
  Weight: 41.6 kg

DRUGS (8)
  1. CALCIUM CARBONATE [Concomitant]
  2. ELAVIL [Concomitant]
  3. PREDNISONE [Concomitant]
  4. MULTIVITAMIN [Concomitant]
  5. REMICADE [Suspect]
     Indication: CROHN'S DISEASE
     Route: 042
     Dates: start: 20100827
  6. ZYRTEC [Concomitant]
     Route: 048
  7. NEXIUM [Concomitant]
  8. REMICADE [Suspect]
     Route: 042
     Dates: start: 20101011

REACTIONS (1)
  - PNEUMONIA PRIMARY ATYPICAL [None]
